FAERS Safety Report 22313449 (Version 2)
Quarter: 2023Q2

REPORT INFORMATION
  Report Type: Spontaneous
  Country: ES (occurrence: ES)
  Receive Date: 20230512
  Receipt Date: 20230522
  Transmission Date: 20230721
  Serious: Yes (Life-Threatening, Hospitalization, Other)
  Sender: FDA-Public Use
  Company Number: None

PATIENT
  Age: 43 Year
  Sex: Female
  Weight: 65 kg

DRUGS (6)
  1. HYDROCORTISONE [Suspect]
     Active Substance: HYDROCORTISONE
     Indication: Adrenal insufficiency
     Dosage: 50 MILLIGRAM, 24 HOUR
     Route: 048
  2. ESTRADIOL [Suspect]
     Active Substance: ESTRADIOL
     Indication: Primary hypogonadism
     Dosage: 1 MILLIGRAM, 24HOUR, EXCEPT 5 DAYS OF THE MONTH DURING WHICH THE DOSE IS LOWERED TO 1MG/24H
     Route: 048
  3. ESTRADIOL [Suspect]
     Active Substance: ESTRADIOL
     Dosage: 2 MILLIGRAM, 24HOUR
     Route: 048
  4. NORETHINDRONE [Suspect]
     Active Substance: NORETHINDRONE
     Indication: Primary hypogonadism
     Dosage: 1 MILLIGRAM, 24 HOUR, DURING 10 DAYS IN A MONTH
     Route: 048
  5. FLUDROCORTISONE [Suspect]
     Active Substance: FLUDROCORTISONE
     Indication: Adrenal insufficiency
     Dosage: 0.2 MILLIGRAM, Q24 HOUR
     Route: 048
  6. MITOTANE [Suspect]
     Active Substance: MITOTANE
     Indication: Adrenal gland cancer
     Dosage: UNK
     Route: 065

REACTIONS (5)
  - Peliosis hepatis [Recovered/Resolved]
  - Hepatic rupture [Recovered/Resolved]
  - Anaemia [Recovered/Resolved]
  - Hypovolaemic shock [Recovered/Resolved]
  - Hepatic ischaemia [Recovered/Resolved]
